FAERS Safety Report 25758980 (Version 1)
Quarter: 2025Q3

REPORT INFORMATION
  Report Type: Spontaneous
  Country: US (occurrence: US)
  Receive Date: 20250904
  Receipt Date: 20250904
  Transmission Date: 20251020
  Serious: No
  Sender: SANOFI AVENTIS
  Company Number: US-SA-2025SA264013

PATIENT
  Age: 52 Year

DRUGS (1)
  1. LANTUS [Suspect]
     Active Substance: INSULIN GLARGINE
     Indication: Diabetic retinopathy
     Dosage: 30U AM 35U PM 2 TIMES EVERY DAY
     Route: 058

REACTIONS (1)
  - Off label use [Unknown]
